FAERS Safety Report 12172887 (Version 1)
Quarter: 2016Q1

REPORT INFORMATION
  Report Type: Spontaneous
  Country: UA (occurrence: UA)
  Receive Date: 20160311
  Receipt Date: 20160311
  Transmission Date: 20160526
  Serious: Yes (Hospitalization)
  Sender: FDA-Public Use
  Company Number: UA-SA-2016SA044383

PATIENT
  Age: 54 Year
  Sex: Female

DRUGS (3)
  1. LANTUS [Suspect]
     Active Substance: INSULIN GLARGINE
     Indication: DIABETES MELLITUS
     Dosage: DOSE:45 UNIT(S)
     Route: 058
     Dates: start: 2009
  2. LISORETIC [Concomitant]
  3. TENORIC [Concomitant]
     Active Substance: ATENOLOL\CHLORTHALIDONE

REACTIONS (6)
  - Pancreatitis [Unknown]
  - Peripheral swelling [Recovered/Resolved]
  - Coma [Recovered/Resolved]
  - Pneumonia [Unknown]
  - Chills [Recovered/Resolved]
  - Loss of consciousness [Recovered/Resolved]

NARRATIVE: CASE EVENT DATE: 201602
